FAERS Safety Report 15290671 (Version 2)
Quarter: 2019Q4

REPORT INFORMATION
  Report Type: Report from Study
  Country: GB (occurrence: GB)
  Receive Date: 20180817
  Receipt Date: 20191128
  Transmission Date: 20200122
  Serious: Yes (Other)
  Sender: FDA-Public Use
  Company Number: GB-AMGEN-GBRSL2018112127

PATIENT
  Age: 76 Year
  Sex: Female

DRUGS (1)
  1. REPATHA [Suspect]
     Active Substance: EVOLOCUMAB
     Indication: BLOOD CHOLESTEROL INCREASED
     Dosage: UNK
     Route: 058
     Dates: start: 201805, end: 201808

REACTIONS (3)
  - Pruritus [Unknown]
  - Papule [Recovering/Resolving]
  - Oral papule [Recovering/Resolving]

NARRATIVE: CASE EVENT DATE: 201806
